FAERS Safety Report 22979893 (Version 9)
Quarter: 2025Q4

REPORT INFORMATION
  Report Type: Spontaneous
  Country: US (occurrence: US)
  Receive Date: 20230925
  Receipt Date: 20251118
  Transmission Date: 20260118
  Serious: No
  Sender: PFIZER
  Company Number: US-PFIZER INC-PV202300159412

PATIENT
  Age: 41 Year
  Sex: Female

DRUGS (13)
  1. IBRANCE [Suspect]
     Active Substance: PALBOCICLIB
     Indication: Breast cancer metastatic
     Dosage: 125 MG, TAKE 1 TABLET BY MOUTH ONCE DAILY ON DAYS 1-21 OF A 28 DAY CYCLE
     Route: 048
     Dates: start: 20230817, end: 20231002
  2. IBRANCE [Suspect]
     Active Substance: PALBOCICLIB
     Dosage: 100 MG, TAKE 1 TABLET BY MOUTH ONCE DAILY ON DAYS 1-21 OF A 28 DAY CYCLE
     Route: 048
     Dates: start: 20231031
  3. IBRANCE [Suspect]
     Active Substance: PALBOCICLIB
     Dosage: 100 MG, CYCLIC (TAKE ONE TABLET ONCE DAILY ON DAYS 1-21)
     Route: 048
  4. ESCITALOPRAM [Concomitant]
     Active Substance: ESCITALOPRAM OXALATE
     Indication: Depression
     Dosage: UNK
  5. ESCITALOPRAM [Concomitant]
     Active Substance: ESCITALOPRAM OXALATE
     Indication: Anxiety
  6. FASLODEX [Concomitant]
     Active Substance: FULVESTRANT
     Dosage: 250/5ML
  7. LETROZOLE [Concomitant]
     Active Substance: LETROZOLE
     Dosage: UNK, MONTHLY
  8. LUPRON DEPOT [Concomitant]
     Active Substance: LEUPROLIDE ACETATE
     Dosage: 3.75 MG, MONTHLY
  9. MELOXICAM [Concomitant]
     Active Substance: MELOXICAM
     Dosage: 15 MG
  10. OMEPRAZOLE [Concomitant]
     Active Substance: OMEPRAZOLE
     Dosage: 20 MG
  11. ONDANSETRON [Concomitant]
     Active Substance: ONDANSETRON
     Dosage: 8 MG
  12. OXYCODONE [Concomitant]
     Active Substance: OXYCODONE
     Dosage: UNK
  13. ZOMETA [Concomitant]
     Active Substance: ZOLEDRONIC ACID
     Dosage: UNK , (EVERY 12 WEEK)

REACTIONS (3)
  - White blood cell count decreased [Unknown]
  - Dry skin [Unknown]
  - Fatigue [Unknown]

NARRATIVE: CASE EVENT DATE: 20230101
